FAERS Safety Report 7593696-7 (Version None)
Quarter: 2011Q3

REPORT INFORMATION
  Report Type: 
  Country: None (occurrence: None)
  Receive Date: 20110706
  Receipt Date: 20110622
  Transmission Date: 20111222
  Serious: Yes (Hospitalization)
  Sender: FDA-Public Use
  Company Number: PHHY2011FR55904

PATIENT
  Sex: Male

DRUGS (3)
  1. COLCHICINE [Suspect]
     Dosage: 6 DF, DAILY
  2. COLCHICINE [Suspect]
     Indication: GOUT
     Dosage: UNK UKN, UNK
     Dates: end: 20110217
  3. VOLTAREN [Suspect]
     Indication: GOUT
     Dosage: UNK UKN, UNK
     Dates: end: 20110217

REACTIONS (12)
  - CALCULUS URETHRAL [None]
  - ARTHRALGIA [None]
  - SWELLING [None]
  - RENAL FAILURE ACUTE [None]
  - BLOOD ALKALINE PHOSPHATASE INCREASED [None]
  - ALANINE AMINOTRANSFERASE INCREASED [None]
  - AZOTAEMIA [None]
  - BLOOD CREATININE INCREASED [None]
  - ASPARTATE AMINOTRANSFERASE INCREASED [None]
  - GAMMA-GLUTAMYLTRANSFERASE INCREASED [None]
  - JOINT EFFUSION [None]
  - BLOOD CREATINE PHOSPHOKINASE INCREASED [None]
